FAERS Safety Report 4640486-0 (Version None)
Quarter: 2005Q2

REPORT INFORMATION
  Report Type: 
  Country: None (occurrence: None)
  Receive Date: 20050419
  Receipt Date: 20050408
  Transmission Date: 20051028
  Serious: Yes (Hospitalization)
  Sender: FDA-Public Use
  Company Number: KII-2005-0016028

PATIENT
  Age: 54 Year
  Sex: Female

DRUGS (3)
  1. MORPHINE SULFATE [Suspect]
     Dosage: ORAL
     Route: 048
  2. LEXAPRO [Suspect]
     Dosage: ORAL
     Route: 048
  3. PREDNISONE [Suspect]
     Dosage: ORAL
     Route: 048

REACTIONS (8)
  - BLOOD GLUCOSE ABNORMAL [None]
  - CONFUSIONAL STATE [None]
  - HYPERCAPNIA [None]
  - HYPONATRAEMIA [None]
  - MENTAL STATUS CHANGES [None]
  - MIOSIS [None]
  - OPIATES POSITIVE [None]
  - THERAPY NON-RESPONDER [None]
